FAERS Safety Report 4693813-2 (Version None)
Quarter: 2005Q2

REPORT INFORMATION
  Report Type: 
  Country: None (occurrence: None)
  Receive Date: 20050616
  Receipt Date: 20050609
  Transmission Date: 20051028
  Serious: Yes (Hospitalization)
  Sender: FDA-Public Use
  Company Number: 2005-05-1530

PATIENT
  Age: 31 Year
  Sex: Female
  Weight: 77 kg

DRUGS (3)
  1. CELESTAMINE TAB [Suspect]
     Indication: RHINITIS ALLERGIC
     Dosage: 2 TABLETS ORAL
     Route: 048
     Dates: start: 20050303, end: 20050503
  2. ULCERLMIN TABLETS [Concomitant]
  3. SCOPOLIA EXTRACT TABLETS [Concomitant]

REACTIONS (1)
  - PNEUMONIA [None]
